FAERS Safety Report 13392144 (Version 1)
Quarter: 2017Q1

REPORT INFORMATION
  Report Type: Spontaneous
  Country: US (occurrence: US)
  Receive Date: 20170331
  Receipt Date: 20170331
  Transmission Date: 20170429
  Serious: Yes (Death, Other)
  Sender: FDA-Public Use
  Company Number: US-ASTELLAS-2017US012262

PATIENT
  Age: 53 Year
  Sex: Male

DRUGS (3)
  1. PROGRAF [Suspect]
     Active Substance: TACROLIMUS\TACROLIMUS ANHYDROUS
     Indication: PRODUCT USED FOR UNKNOWN INDICATION
     Dosage: 275 ML, OTHER (OVER ONE HOUR)
     Route: 040
  2. TACROLIMUS. [Suspect]
     Active Substance: TACROLIMUS
     Indication: STEM CELL TRANSPLANT
     Dosage: 1MG IN MORNING AND 0.5 MG IN EVENING, TWICE DAILY
     Route: 048
  3. PREDNISONE. [Concomitant]
     Active Substance: PREDNISONE
     Indication: PRODUCT USED FOR UNKNOWN INDICATION
     Dosage: UNK UNK, UNKNOWN FREQ.
     Route: 065

REACTIONS (10)
  - Thrombosis [Unknown]
  - Encephalopathy [Unknown]
  - Chromaturia [Unknown]
  - Cerebrovascular accident [Unknown]
  - Off label use [Unknown]
  - Renal failure [Unknown]
  - Therapy non-responder [Unknown]
  - Incorrect dose administered [Unknown]
  - Nephropathy toxic [Unknown]
  - Death [Fatal]

NARRATIVE: CASE EVENT DATE: 201608
